FAERS Safety Report 11437399 (Version 1)
Quarter: 2015Q3

REPORT INFORMATION
  Report Type: Spontaneous
  Country: US (occurrence: US)
  Receive Date: 20150821
  Receipt Date: 20150821
  Transmission Date: 20151125
  Serious: Yes (Hospitalization, Other)
  Sender: FDA-Public Use
  Company Number: US-ELI_LILLY_AND_COMPANY-US200704004486

PATIENT
  Age: 57 Year
  Sex: Male

DRUGS (3)
  1. VITAMINS [Concomitant]
     Active Substance: VITAMINS
  2. XANAX [Concomitant]
     Active Substance: ALPRAZOLAM
  3. CYMBALTA [Suspect]
     Active Substance: DULOXETINE HYDROCHLORIDE
     Indication: AGITATION

REACTIONS (2)
  - Seizure [Unknown]
  - Muscle spasms [Unknown]
